FAERS Safety Report 7824657-8 (Version None)
Quarter: 2011Q4

REPORT INFORMATION
  Report Type: 
  Country: None (occurrence: None)
  Receive Date: 20111019
  Receipt Date: 20111008
  Transmission Date: 20120403
  Serious: Yes (Hospitalization)
  Sender: FDA-Public Use
  Company Number: PHHY2011US89442

PATIENT
  Sex: Female
  Weight: 61.6 kg

DRUGS (5)
  1. TACROLIMUS [Concomitant]
     Indication: IMMUNOSUPPRESSION
     Dosage: 10 MG
  2. CLONIDINE [Concomitant]
     Indication: HYPERTENSION
     Dosage: 0.8 MG DAILY
  3. HYDRALAZINE HCL [Concomitant]
     Indication: HYPERTENSION
     Dosage: 30 MG DAILY
  4. MYFORTIC [Suspect]
     Indication: RENAL TRANSPLANT
     Dosage: 720 MG
     Route: 048
     Dates: start: 20071224
  5. PREDNISONE [Concomitant]
     Indication: IMMUNOSUPPRESSION

REACTIONS (2)
  - RENAL GRAFT LOSS [None]
  - GLOMERULONEPHRITIS MEMBRANOPROLIFERATIVE [None]
